FAERS Safety Report 9684527 (Version 2)
Quarter: 2014Q1

REPORT INFORMATION
  Report Type: Spontaneous
  Country: US (occurrence: US)
  Receive Date: 20131112
  Receipt Date: 20140121
  Transmission Date: 20141002
  Serious: Yes (Other)
  Sender: FDA-Public Use
  Company Number: US-FRI-1000050881

PATIENT
  Sex: Female
  Weight: 117 kg

DRUGS (9)
  1. VIIBRYD [Suspect]
     Indication: DEPRESSION
     Dosage: 10MG
     Route: 048
     Dates: start: 20130522
  2. VIIBRYD [Suspect]
     Dosage: 20MG
     Route: 048
  3. VIIBRYD [Suspect]
     Dosage: 40MG
     Route: 048
  4. ENALAPRIL [Concomitant]
  5. IRON [Concomitant]
  6. CALCIUM [Concomitant]
  7. VITAMIN D [Concomitant]
  8. FOSAMAX [Concomitant]
     Dosage: 35MG WEEKLY
  9. PLAQUENIL [Concomitant]
     Dosage: BID

REACTIONS (2)
  - Suicide attempt [Recovered/Resolved]
  - Somnolence [Unknown]
